FAERS Safety Report 11802505 (Version 1)
Quarter: 2015Q4

REPORT INFORMATION
  Report Type: Spontaneous
  Country: US (occurrence: US)
  Receive Date: 20151204
  Receipt Date: 20151204
  Transmission Date: 20160305
  Serious: No
  Sender: FDA-Public Use
  Company Number: US-ASTRAZENECA-2015SF13035

PATIENT
  Age: 43 Year
  Sex: Female

DRUGS (10)
  1. SYMBICORT [Suspect]
     Active Substance: BUDESONIDE\FORMOTEROL FUMARATE DIHYDRATE
     Indication: BRONCHITIS CHRONIC
     Dosage: 160/4.5 MCG;  2 OR 3 PUFFS IN THE MORNING AND 2 OR 3 PUFFS IN THE EVENING; AS REQUIRED;
     Route: 055
  2. SYMBICORT [Suspect]
     Active Substance: BUDESONIDE\FORMOTEROL FUMARATE DIHYDRATE
     Indication: ASTHMA
     Dosage: 80/4.5 MCG; 2 OR 3 PUFFS IN THE MORNING AND 2 OR 3 PUFFS IN THE EVENING; AS REQUIRED
     Route: 055
  3. BENADRYL [Concomitant]
     Active Substance: DIPHENHYDRAMINE HYDROCHLORIDE
     Indication: MULTIPLE ALLERGIES
     Route: 048
  4. SYMBICORT [Suspect]
     Active Substance: BUDESONIDE\FORMOTEROL FUMARATE DIHYDRATE
     Indication: BRONCHITIS CHRONIC
     Dosage: 80/4.5 MCG; 2 OR 3 PUFFS IN THE MORNING AND 2 OR 3 PUFFS IN THE EVENING; AS REQUIRED
     Route: 055
  5. ADVAIR HFA [Concomitant]
     Active Substance: FLUTICASONE PROPIONATE\SALMETEROL XINAFOATE
  6. CLONIDINE. [Concomitant]
     Active Substance: CLONIDINE
     Indication: ANXIETY
     Route: 048
     Dates: start: 2010
  7. CLONIDINE. [Concomitant]
     Active Substance: CLONIDINE
     Indication: ANXIETY
     Route: 048
     Dates: start: 2010
  8. SYMBICORT [Suspect]
     Active Substance: BUDESONIDE\FORMOTEROL FUMARATE DIHYDRATE
     Indication: ASTHMA
     Dosage: 160/4.5 MCG;  2 OR 3 PUFFS IN THE MORNING AND 2 OR 3 PUFFS IN THE EVENING; AS REQUIRED;
     Route: 055
  9. SYMBICORT [Suspect]
     Active Substance: BUDESONIDE\FORMOTEROL FUMARATE DIHYDRATE
     Indication: CHRONIC OBSTRUCTIVE PULMONARY DISEASE
     Dosage: 160/4.5 MCG;  2 OR 3 PUFFS IN THE MORNING AND 2 OR 3 PUFFS IN THE EVENING; AS REQUIRED;
     Route: 055
  10. SYMBICORT [Suspect]
     Active Substance: BUDESONIDE\FORMOTEROL FUMARATE DIHYDRATE
     Indication: CHRONIC OBSTRUCTIVE PULMONARY DISEASE
     Dosage: 80/4.5 MCG; 2 OR 3 PUFFS IN THE MORNING AND 2 OR 3 PUFFS IN THE EVENING; AS REQUIRED
     Route: 055

REACTIONS (7)
  - Attention deficit/hyperactivity disorder [Unknown]
  - Off label use [Unknown]
  - Feeling abnormal [Unknown]
  - Intentional product misuse [Unknown]
  - Drug dose omission [Unknown]
  - Dyspnoea [Unknown]
  - Disability [Unknown]

NARRATIVE: CASE EVENT DATE: 2015
